FAERS Safety Report 23787954 (Version 5)
Quarter: 2025Q1

REPORT INFORMATION
  Report Type: Spontaneous
  Country: US (occurrence: US)
  Receive Date: 20240426
  Receipt Date: 20250331
  Transmission Date: 20250409
  Serious: Yes (Other)
  Sender: BRISTOL-MYERS SQUIBB COMPANY
  Company Number: US-BRISTOL-MYERS SQUIBB COMPANY-2024-061454

PATIENT
  Age: 71 Year
  Sex: Female

DRUGS (1)
  1. POMALYST [Suspect]
     Active Substance: POMALIDOMIDE
     Indication: Plasma cell myeloma
     Dosage: FREQUENCY: TAKE 1 CAPSULE BY MOUTH DAILY 21 DS AND 7 DS OFF
     Route: 048

REACTIONS (5)
  - Neuropathy peripheral [Unknown]
  - Overdose [Unknown]
  - Balance disorder [Unknown]
  - Joint swelling [Unknown]
  - Peripheral swelling [Unknown]
